FAERS Safety Report 9474163 (Version 1)
Quarter: 2013Q3

REPORT INFORMATION
  Report Type: Spontaneous
  Country: FR (occurrence: None)
  Receive Date: 20130820
  Receipt Date: 20130820
  Transmission Date: 20140515
  Serious: Yes (Death)
  Sender: FDA-Public Use
  Company Number: 2013FR00547

PATIENT
  Sex: 0

DRUGS (2)
  1. GEMCITABINE [Suspect]
     Indication: PANCREATIC CARCINOMA
     Dosage: OVER 30 MIN ON DAYS 1, 8, 15 AND 28 DAY CYCLES, INTRAVENOUS
     Route: 042
  2. AFLIBERCEPT [Suspect]
     Dosage: 1 H EVERY 2 WEEKS ON DAYS 1 AND 15 OF EVERY 4 WEEKS CYCLE,
     Route: 042

REACTIONS (1)
  - Pulmonary embolism [None]
